FAERS Safety Report 9924279 (Version 1)
Quarter: 2014Q1

REPORT INFORMATION
  Report Type: Spontaneous
  Country: FR (occurrence: FR)
  Receive Date: 20140226
  Receipt Date: 20140226
  Transmission Date: 20141002
  Serious: Yes (Hospitalization)
  Sender: FDA-Public Use
  Company Number: FR-PFIZER INC-2014052950

PATIENT
  Age: 87 Year
  Sex: Male

DRUGS (9)
  1. CORDARONE [Suspect]
     Dosage: 100 MG, DAILY
     Route: 048
     Dates: start: 201303
  2. PLAVIX [Interacting]
     Dosage: 75 MG, 1 TABLET DAILY
     Route: 048
     Dates: end: 20131209
  3. PRADAXA [Interacting]
     Indication: ATRIAL FIBRILLATION
     Dosage: 200 MG (2 CAPSULES), DAILY
     Route: 048
     Dates: start: 20130321, end: 20131209
  4. BISOPROLOL [Concomitant]
  5. EZETROL [Concomitant]
  6. AMLODIPINE [Concomitant]
  7. FUROSEMIDE [Concomitant]
  8. PRAVASTATIN [Concomitant]
  9. REPAGLINIDE [Concomitant]

REACTIONS (3)
  - Drug interaction [Recovered/Resolved]
  - Rectal haemorrhage [Recovered/Resolved]
  - Haemoglobin decreased [Recovered/Resolved]
